FAERS Safety Report 17993747 (Version 2)
Quarter: 2020Q3

REPORT INFORMATION
  Report Type: Other
  Country: FR (occurrence: FR)
  Receive Date: 20200708
  Receipt Date: 20200714
  Transmission Date: 20201103
  Serious: Yes (Death, Other)
  Sender: FDA-Public Use
  Company Number: FR-ROCHE-2632888

PATIENT
  Age: 65 Year
  Sex: Male

DRUGS (3)
  1. ACTILYSE [Suspect]
     Active Substance: ALTEPLASE
     Indication: COVID-19 PNEUMONIA
  2. ACTILYSE [Suspect]
     Active Substance: ALTEPLASE
     Indication: SHOCK
  3. ACTILYSE [Suspect]
     Active Substance: ALTEPLASE
     Indication: PULMONARY EMBOLISM
     Route: 042

REACTIONS (4)
  - Intentional product use issue [Unknown]
  - Shock [Fatal]
  - Off label use [Unknown]
  - Haemorrhage [Unknown]
